FAERS Safety Report 24307885 (Version 5)
Quarter: 2024Q4

REPORT INFORMATION
  Report Type: Report from Study
  Country: JP (occurrence: JP)
  Receive Date: 20240911
  Receipt Date: 20241125
  Transmission Date: 20250115
  Serious: Yes (Other)
  Sender: JOHNSON AND JOHNSON
  Company Number: JP-JNJFOC-20240921983

PATIENT

DRUGS (1)
  1. SIMPONI [Suspect]
     Active Substance: GOLIMUMAB
     Indication: Rheumatoid arthritis
     Dosage: DOSE UNKNOWN
     Route: 058

REACTIONS (6)
  - Pneumonia [Unknown]
  - Lymphoproliferative disorder [Unknown]
  - Neoplasm malignant [Unknown]
  - Herpes zoster [Unknown]
  - Drug eruption [Unknown]
  - Drug ineffective [Unknown]
